FAERS Safety Report 16351532 (Version 2)
Quarter: 2019Q2

REPORT INFORMATION
  Report Type: Spontaneous
  Country: CN (occurrence: CN)
  Receive Date: 20190524
  Receipt Date: 20190530
  Transmission Date: 20190711
  Serious: Yes (Hospitalization, Other)
  Sender: FDA-Public Use
  Company Number: CN-ASTRAZENECA-2019SE76397

PATIENT
  Age: 44 Year
  Sex: Male

DRUGS (8)
  1. GEFITINIB. [Suspect]
     Active Substance: GEFITINIB
  2. TAGRISSO [Suspect]
     Active Substance: OSIMERTINIB
     Indication: SMALL CELL LUNG CANCER METASTATIC
     Route: 048
  3. CARBAMAZEPINE. [Interacting]
     Active Substance: CARBAMAZEPINE
     Indication: EPILEPSY
  4. VALPROATE SODIUM. [Concomitant]
     Active Substance: VALPROATE SODIUM
     Indication: EPILEPSY
     Route: 048
  5. MECOBALAMIN [Concomitant]
     Active Substance: METHYLCOBALAMIN
     Indication: TINNITUS
  6. MERISLON [Concomitant]
     Active Substance: BETAHISTINE MESILATE
     Indication: TINNITUS
     Route: 048
  7. BARACLUDE [Concomitant]
     Active Substance: ENTECAVIR
     Indication: HEPATITIS B
     Route: 048
  8. VALPROATE SODIUM. [Concomitant]
     Active Substance: VALPROATE SODIUM
     Indication: EPILEPSY
     Route: 048

REACTIONS (8)
  - Drug interaction [Unknown]
  - Metastases to meninges [Unknown]
  - Epilepsy [Recovered/Resolved]
  - Malignant neoplasm progression [Unknown]
  - Drug level decreased [Unknown]
  - Drug resistance [Unknown]
  - Acquired gene mutation [Unknown]
  - Therapeutic product effect incomplete [Recovered/Resolved]
